FAERS Safety Report 7474427-8 (Version None)
Quarter: 2011Q2

REPORT INFORMATION
  Report Type: 
  Country: None (occurrence: None)
  Receive Date: 20110512
  Receipt Date: 20110221
  Transmission Date: 20111010
  Serious: No
  Sender: FDA-Public Use
  Company Number: US-BAYER-2011-017185

PATIENT
  Sex: Female

DRUGS (3)
  1. CELEXA [Concomitant]
  2. AVELOX [Suspect]
  3. XANAX [Concomitant]

REACTIONS (3)
  - SUSPICIOUSNESS [None]
  - ANGER [None]
  - AGITATION [None]
